FAERS Safety Report 18324830 (Version 7)
Quarter: 2020Q4

REPORT INFORMATION
  Report Type: Spontaneous
  Country: FR (occurrence: FR)
  Receive Date: 20200929
  Receipt Date: 20201211
  Transmission Date: 20210113
  Serious: Yes (Hospitalization, Other)
  Sender: FDA-Public Use
  Company Number: FR-PFIZER INC-2020371723

PATIENT
  Age: 85 Year
  Sex: Female
  Weight: 94 kg

DRUGS (6)
  1. ZYVOXID [Suspect]
     Active Substance: LINEZOLID
     Indication: BACTERAEMIA
     Dosage: 1200 MG, 1X/DAY (2 MG/ML, SOLUTION POUR PERFUSION)
     Route: 042
     Dates: start: 20200814, end: 20200819
  2. TAZOCILLINE [Suspect]
     Active Substance: PIPERACILLIN SODIUM\TAZOBACTAM SODIUM
     Indication: BACTERAEMIA
     Dosage: 3 DF, 1X/DAY (4 G/500 MG, POUDRE POUR SOLUTION POUR PERFUSION)
     Route: 042
     Dates: start: 20200814, end: 20200819
  3. MIDAZOLAM HYDROCHLORIDE. [Suspect]
     Active Substance: MIDAZOLAM HYDROCHLORIDE
     Indication: SEDATION
  4. SUFENTANIL [Suspect]
     Active Substance: SUFENTANIL
     Indication: SEDATION
     Dosage: 20 UG, Q1HR
     Route: 042
     Dates: start: 20200814, end: 20200819
  5. PANTOPRAZOLE [Suspect]
     Active Substance: PANTOPRAZOLE
     Indication: PROPHYLAXIS
     Dosage: 40 MG, 1X/DAY
     Route: 042
     Dates: start: 20200814, end: 20200814
  6. MIDAZOLAM HYDROCHLORIDE. [Suspect]
     Active Substance: MIDAZOLAM HYDROCHLORIDE
     Indication: SEIZURE
     Dosage: 6 UG, 1X/DAY
     Route: 042
     Dates: start: 20200814, end: 20200815

REACTIONS (2)
  - Delayed recovery from anaesthesia [Recovered/Resolved]
  - Encephalopathy [Recovered/Resolved]

NARRATIVE: CASE EVENT DATE: 20200816
